FAERS Safety Report 4501657-7 (Version None)
Quarter: 2004Q4

REPORT INFORMATION
  Report Type: 
  Country: None (occurrence: None)
  Receive Date: 20041115
  Receipt Date: 20041115
  Transmission Date: 20050328
  Serious: Yes (Hospitalization)
  Sender: FDA-Public Use
  Company Number: None

PATIENT
  Age: 70 Year
  Sex: Male
  Weight: 101.8 kg

DRUGS (17)
  1. MORPHINE [Suspect]
  2. PREDNISONE [Suspect]
  3. ATORVASTATIN [Concomitant]
  4. LISINOPRIL [Concomitant]
  5. METOPROLOL [Concomitant]
  6. INSULIN [Concomitant]
  7. RANITIDINE [Concomitant]
  8. SILDENAFIL [Concomitant]
  9. DOCUSATE [Concomitant]
  10. FUROSEMIDE [Concomitant]
  11. GABAPENTIN [Concomitant]
  12. INSULIN HUMAN REGULAR [Concomitant]
  13. INSULIN HUMAN NPH [Concomitant]
  14. FELODIPINE [Concomitant]
  15. FLUOXETINE [Concomitant]
  16. TRAMADOL [Concomitant]
  17. NIACIN EXTENDED RELEASE [Concomitant]

REACTIONS (1)
  - MENTAL STATUS CHANGES [None]
